FAERS Safety Report 5716055-8 (Version None)
Quarter: 2008Q2

REPORT INFORMATION
  Report Type: 
  Country: None (occurrence: None)
  Receive Date: 20080423
  Receipt Date: 20080423
  Transmission Date: 20081010
  Serious: Yes (Other)
  Sender: FDA-Public Use
  Company Number: None

PATIENT
  Age: 28 Year
  Sex: Male
  Weight: 95.2554 kg

DRUGS (1)
  1. MERCAPTOPURINE [Suspect]
     Indication: CROHN'S DISEASE
     Dosage: 75 MG DAILY PO
     Route: 048
     Dates: start: 19981101, end: 20070915

REACTIONS (5)
  - PREGNANCY OF PARTNER [None]
  - SPERM COUNT DECREASED [None]
  - SPERMATOZOA MORPHOLOGY ABNORMAL [None]
  - SPERMATOZOA PROGRESSIVE MOTILITY DECREASED [None]
  - TRANSMISSION OF DRUG VIA SEMEN [None]
